FAERS Safety Report 7779781-5 (Version None)
Quarter: 2011Q3

REPORT INFORMATION
  Report Type: 
  Country: None (occurrence: None)
  Receive Date: 20110927
  Receipt Date: 20110915
  Transmission Date: 20111222
  Serious: Yes (Other)
  Sender: FDA-Public Use
  Company Number: CA-JNJFOC-20110907504

PATIENT
  Sex: Female
  Weight: 62 kg

DRUGS (3)
  1. PREDNISONE [Concomitant]
     Route: 065
  2. REMICADE [Suspect]
     Indication: COLITIS ULCERATIVE
     Route: 042
     Dates: start: 20110726
  3. IMURAN [Concomitant]
     Route: 065

REACTIONS (2)
  - PRESYNCOPE [None]
  - LOSS OF CONSCIOUSNESS [None]
